FAERS Safety Report 11564375 (Version 1)
Quarter: 2015Q3

REPORT INFORMATION
  Report Type: Spontaneous
  Country: US (occurrence: US)
  Receive Date: 20150928
  Receipt Date: 20150928
  Transmission Date: 20151125
  Serious: No
  Sender: FDA-Public Use
  Company Number: GXBR2015US001892

PATIENT
  Sex: Female

DRUGS (2)
  1. LORAZEPAM ACTAVIS 0.5MG [Suspect]
     Active Substance: LORAZEPAM
     Indication: NERVOUSNESS
  2. LORAZEPAM ACTAVIS 0.5MG [Suspect]
     Active Substance: LORAZEPAM
     Indication: ANXIETY
     Route: 048

REACTIONS (3)
  - Nervousness [Unknown]
  - Anxiety [Unknown]
  - Drug ineffective [Unknown]
